FAERS Safety Report 12693697 (Version 1)
Quarter: 2016Q3

REPORT INFORMATION
  Report Type: Spontaneous
  Country: US (occurrence: US)
  Receive Date: 20160829
  Receipt Date: 20160829
  Transmission Date: 20161109
  Serious: No
  Sender: FDA-Public Use
  Company Number: US-PFIZER INC-2016384115

PATIENT
  Age: 58 Year
  Sex: Male
  Weight: 117 kg

DRUGS (10)
  1. VITAMIN B12 [Concomitant]
     Active Substance: CYANOCOBALAMIN
     Indication: ASTHENIA
     Dosage: 1000 UG, DAILY
     Route: 048
     Dates: start: 201509
  2. ARTIFICIAL TEARS [Concomitant]
     Active Substance: GLYCERIN\HYPROMELLOSES\POLYETHYLENE GLYCOL 400
     Indication: DRY EYE
     Dosage: 1 DF, 4X/DAY (ONE DROP EACH EYE 4 TIMES DAILY)
     Dates: start: 201501
  3. B6 [Concomitant]
     Active Substance: PYRIDOXINE HYDROCHLORIDE
     Indication: ENERGY INCREASED
     Dosage: 100 MG, DAILY
     Route: 048
     Dates: start: 201509
  4. ALEVE [Concomitant]
     Active Substance: NAPROXEN SODIUM
     Indication: ARTHRITIS
     Dosage: 440 MG, 2X/DAY
     Route: 048
  5. GINSENG [Concomitant]
     Active Substance: ASIAN GINSENG
     Indication: GLUCOSE-6-PHOSPHATE DEHYDROGENASE DEFICIENCY
     Dosage: 100 MG, DAILY
     Route: 048
  6. DEPO-TESTOSTERONE [Suspect]
     Active Substance: TESTOSTERONE CYPIONATE
     Indication: BLOOD TESTOSTERONE DECREASED
     Dosage: UNK, MONTHLY (GIVEN EVERY 30 DAYS)
     Route: 030
     Dates: start: 20160628
  7. ZINC [Concomitant]
     Active Substance: ZINC\ZINC CHLORIDE
     Indication: PROPHYLAXIS
     Dosage: 100 MG, DAILY
     Route: 048
  8. L-ARGININE [Concomitant]
     Active Substance: ARGININE
     Indication: PROPHYLAXIS
     Dosage: 500 MG, DAILY
     Route: 048
     Dates: start: 2005
  9. EQUATE NASAL [Concomitant]
     Active Substance: OXYMETAZOLINE HYDROCHLORIDE\PHENYLEPHRINE HYDROCHLORIDE
     Indication: SINUS CONGESTION
     Dosage: 120 MG, 1X/DAY (NIGHTLY)
     Route: 048
  10. FLAXSEED [Concomitant]
     Active Substance: FLAX SEED
     Indication: INTRAOCULAR PRESSURE INCREASED
     Dosage: 4000 MG, DAILY
     Route: 048
     Dates: start: 201501

REACTIONS (1)
  - Drug ineffective [Unknown]
